FAERS Safety Report 7613110-2 (Version None)
Quarter: 2011Q3

REPORT INFORMATION
  Report Type: 
  Country: None (occurrence: None)
  Receive Date: 20110708
  Receipt Date: 20110630
  Transmission Date: 20111222
  Serious: Yes (Death, Other)
  Sender: FDA-Public Use
  Company Number: 1000021566

PATIENT
  Age: 74 Year
  Sex: Male
  Weight: 88 kg

DRUGS (12)
  1. RAMIPRIL [Concomitant]
  2. DUTASTERIDE (DUTASTERIDE) (DUTASTERIDE) [Concomitant]
  3. FUROSEMIDE [Concomitant]
  4. SPIRIVA (TIOTROPIUM BROMIDE) (TIOTROPIUM BROMIDE) [Concomitant]
  5. SINTROM (ACENOCOUMAROL) (ACENOCOUMAROL) [Concomitant]
  6. ESPIRONOLACTONA (SPIRONOLACTONE) (SPIRONOLACTONE) [Concomitant]
  7. METFORMIN HCL [Concomitant]
  8. REPAGLINIDE (REPAGLINIDE) (REPAGLINIDE) [Concomitant]
  9. CARVEDILOL [Concomitant]
  10. DIGOXIN [Concomitant]
  11. ROFLUMILAST (ROFLUMILAST) (TABLETS) [Suspect]
     Indication: CHRONIC OBSTRUCTIVE PULMONARY DISEASE
     Dosage: 500 MCG (500 MCG,1 IN 1 D),ORAL
     Route: 048
     Dates: start: 20110415
  12. SYMBICORT (BUDESONIDE, FORMOTEROL FUMARATE) (BUDESONIDE, FORMOTEROL FU [Concomitant]

REACTIONS (3)
  - CARDIAC ARREST [None]
  - ARRHYTHMIA [None]
  - WEIGHT DECREASED [None]
